FAERS Safety Report 24258493 (Version 1)
Quarter: 2024Q3

REPORT INFORMATION
  Report Type: Spontaneous
  Country: US (occurrence: US)
  Receive Date: 20240828
  Receipt Date: 20240828
  Transmission Date: 20241017
  Serious: Yes (Other)
  Sender: DR REDDYS
  Company Number: US-DRL-USA-LIT/USA/24/0012413

PATIENT
  Age: 50 Year
  Sex: Male

DRUGS (5)
  1. ISOTRETINOIN [Suspect]
     Active Substance: ISOTRETINOIN
     Indication: Hidradenitis
     Route: 048
  2. METHOTREXATE [Concomitant]
     Active Substance: METHOTREXATE
     Indication: Hidradenitis
     Route: 048
  3. ETANERCEPT [Concomitant]
     Active Substance: ETANERCEPT
     Indication: Hidradenitis
     Route: 048
  4. ADALIMUMAB [Concomitant]
     Active Substance: ADALIMUMAB
     Indication: Hidradenitis
     Route: 048
  5. TETRACYCLINE [Concomitant]
     Active Substance: TETRACYCLINE
     Indication: Hidradenitis
     Route: 048

REACTIONS (1)
  - Drug ineffective for unapproved indication [Unknown]
